FAERS Safety Report 22012053 (Version 2)
Quarter: 2023Q1

REPORT INFORMATION
  Report Type: Report from Study
  Country: MX (occurrence: MX)
  Receive Date: 20230220
  Receipt Date: 20230320
  Transmission Date: 20230417
  Serious: Yes (Other)
  Sender: FDA-Public Use
  Company Number: MX-002147023-NVSC2023MX037926

PATIENT
  Sex: Female
  Weight: 78.7 kg

DRUGS (1)
  1. TASIGNA [Suspect]
     Active Substance: NILOTINIB
     Indication: Chronic myeloid leukaemia
     Dosage: UNK
     Route: 048
     Dates: start: 202211

REACTIONS (10)
  - Diverticulitis [Unknown]
  - Hunger [Unknown]
  - Thirst [Unknown]
  - Dairy intolerance [Unknown]
  - Dizziness [Unknown]
  - Dyslexia [Unknown]
  - Memory impairment [Unknown]
  - Fatigue [Unknown]
  - Vomiting [Unknown]
  - Headache [Unknown]
